FAERS Safety Report 16944195 (Version 2)
Quarter: 2020Q1

REPORT INFORMATION
  Report Type: Spontaneous
  Country: NL (occurrence: NL)
  Receive Date: 20191022
  Receipt Date: 20200107
  Transmission Date: 20200409
  Serious: Yes (Disabling)
  Sender: FDA-Public Use
  Company Number: NL-TEVA-2019-NL-1124289

PATIENT
  Age: 71 Year
  Sex: Female
  Weight: 71 kg

DRUGS (9)
  1. EDOXABAN 60MG [Concomitant]
     Dosage: 60 MG
  2. HYDROCHLOORTHIAZIDE 12,5MG [Concomitant]
     Active Substance: HYDROCHLOROTHIAZIDE
     Dosage: 12 MG
  3. UBIQUINOL 50MG (COENZYME Q10 (COQ10) [Concomitant]
     Dosage: 50MG
  4. (ORTHIHA) VITAMINE D3   20MCG [Concomitant]
     Dosage: 20MCG
  5. AMIODARONE [Suspect]
     Active Substance: AMIODARONE
     Indication: CARDIAC DISORDER
     Dosage: 200MG
     Dates: start: 20180101, end: 20191001
  6. VITAMINE B COMPLEX [Concomitant]
     Active Substance: CYANOCOBALAMIN\PYRIDOXINE HYDROCHLORIDE\RIBOFLAVIN\SODIUM PANTOTHENATE\THIAMINE HYDROCHLORIDE\VITAMIN B COMPLEX
  7. PRALUENT (ALIROCUMAB)INJECTIE [Concomitant]
     Dosage: 1DF PER WEEK
  8. NITROGLYCERING SPRAY [Concomitant]
     Dosage: IF NECESSARY 1DF
  9. BRAHMI 250MG [Concomitant]
     Dosage: 250 MG

REACTIONS (2)
  - Optic nerve disorder [Unknown]
  - Visual impairment [Unknown]

NARRATIVE: CASE EVENT DATE: 20190604
